FAERS Safety Report 4475914-7 (Version None)
Quarter: 2004Q4

REPORT INFORMATION
  Report Type: 
  Country: None (occurrence: None)
  Receive Date: 20041012
  Receipt Date: 20040928
  Transmission Date: 20050328
  Serious: Yes (Death, Hospitalization, Other)
  Sender: FDA-Public Use
  Company Number: 2004070917

PATIENT
  Age: 88 Year
  Sex: Female

DRUGS (7)
  1. ZOLOFT [Suspect]
     Indication: ILL-DEFINED DISORDER
     Dosage: 50 MG, 1 IN 1 D, ORAL
     Route: 048
     Dates: end: 20040730
  2. ARICEPT [Suspect]
     Indication: DEMENTIA ALZHEIMER'S TYPE
     Dosage: 10 MG, 1 IN 1 D, ORAL
     Route: 048
     Dates: start: 20040622, end: 20040803
  3. ACENOCOUMAROL (ACENOCOUMAROL) [Suspect]
     Indication: ILL-DEFINED DISORDER
     Dosage: ORAL
     Route: 048
     Dates: end: 20040803
  4. BROMAZEPAM (BROMAZEPAM) [Concomitant]
  5. LEVOTHYROXINE SODIUM [Concomitant]
  6. ENALAPRIL MALEATE [Concomitant]
  7. OSYROL-LASIX (FUROSEMIDE, SPIRONOLACTONE) [Concomitant]

REACTIONS (13)
  - ATRIAL FIBRILLATION [None]
  - BLOOD PRESSURE ORTHOSTATIC DECREASED [None]
  - BUNDLE BRANCH BLOCK [None]
  - CARDIAC FAILURE ACUTE [None]
  - DECEREBRATION [None]
  - FALL [None]
  - HAEMORRHAGIC STROKE [None]
  - HEAD INJURY [None]
  - ISCHAEMIC STROKE [None]
  - LOSS OF CONSCIOUSNESS [None]
  - MEDICATION ERROR [None]
  - PRESCRIBED OVERDOSE [None]
  - RENAL FAILURE [None]
